FAERS Safety Report 4507180-8 (Version None)
Quarter: 2004Q4

REPORT INFORMATION
  Report Type: 
  Country: None (occurrence: None)
  Receive Date: 20041119
  Receipt Date: 20041107
  Transmission Date: 20050328
  Serious: No
  Sender: FDA-Public Use
  Company Number: LTR 02-04

PATIENT
  Age: 17 Year
  Sex: Female
  Weight: 50 kg

DRUGS (1)
  1. MANNITOL 20% [Suspect]
     Dosage: 150 ML IV
     Route: 042

REACTIONS (2)
  - COMPARTMENT SYNDROME [None]
  - EXTRAVASATION [None]
